FAERS Safety Report 7252376-8 (Version None)
Quarter: 2011Q1

REPORT INFORMATION
  Report Type: 
  Country: None (occurrence: None)
  Receive Date: 20110129
  Receipt Date: 20100104
  Transmission Date: 20110831
  Serious: No
  Sender: FDA-Public Use
  Company Number: US-ABBOTT-09P-163-0560939-00

PATIENT
  Sex: Female
  Weight: 79.45 kg

DRUGS (28)
  1. PAMPRIN TAB [Concomitant]
     Indication: PRODUCT USED FOR UNKNOWN INDICATION
  2. HUMIRA [Suspect]
     Indication: COLITIS ULCERATIVE
     Route: 058
     Dates: start: 20071119, end: 20081211
  3. AZATHIOPRINE [Concomitant]
     Indication: PRODUCT USED FOR UNKNOWN INDICATION
  4. CALCIUM [Concomitant]
     Route: 048
  5. ALOE VERA [Concomitant]
     Indication: PRODUCT USED FOR UNKNOWN INDICATION
  6. ZOLOFT [Concomitant]
  7. TRAMADOL HCL [Concomitant]
     Indication: PRODUCT USED FOR UNKNOWN INDICATION
  8. PRENATAL VITAMINS [Concomitant]
     Indication: PRODUCT USED FOR UNKNOWN INDICATION
  9. VITAMIN E [Concomitant]
     Indication: PRODUCT USED FOR UNKNOWN INDICATION
  10. AZULFIDINE [Concomitant]
     Indication: CROHN'S DISEASE
  11. OMEGA FISH OIL [Concomitant]
     Indication: PRODUCT USED FOR UNKNOWN INDICATION
  12. HUMIRA [Suspect]
     Route: 058
     Dates: end: 20081211
  13. IMIPRAMINE [Concomitant]
     Indication: PRODUCT USED FOR UNKNOWN INDICATION
  14. AZULFIDINE [Concomitant]
     Indication: COLITIS ULCERATIVE
     Dosage: 2 TO 3 TIMES PER DAY
     Route: 048
  15. SULFASALAZINE [Concomitant]
     Indication: CROHN'S DISEASE
  16. ZOLOFT [Concomitant]
     Indication: PRODUCT USED FOR UNKNOWN INDICATION
  17. ASPIRIN [Concomitant]
     Indication: PALPITATIONS
  18. PAXIL [Concomitant]
     Indication: SOMNOLENCE
  19. LEVBID [Concomitant]
     Indication: PRODUCT USED FOR UNKNOWN INDICATION
  20. VITAMIN D+A [Concomitant]
     Indication: PRODUCT USED FOR UNKNOWN INDICATION
     Route: 048
  21. TYLENOL-500 [Concomitant]
     Indication: PRODUCT USED FOR UNKNOWN INDICATION
  22. SULFASALAZINE [Concomitant]
     Indication: COLITIS
  23. PSYLLIUM [Concomitant]
     Indication: PRODUCT USED FOR UNKNOWN INDICATION
  24. CALCIUM [Concomitant]
     Indication: PRODUCT USED FOR UNKNOWN INDICATION
  25. FLAX SEED OIL [Concomitant]
     Indication: PRODUCT USED FOR UNKNOWN INDICATION
     Route: 048
  26. VITAMIN G [Concomitant]
     Indication: PRODUCT USED FOR UNKNOWN INDICATION
     Route: 048
  27. VITAMIN B-12 [Concomitant]
     Indication: PRODUCT USED FOR UNKNOWN INDICATION
     Route: 048
  28. IBUPROFEN [Concomitant]
     Indication: PRODUCT USED FOR UNKNOWN INDICATION
     Dosage: UP TO 1200MG

REACTIONS (44)
  - LYMPHADENOPATHY [None]
  - SINUS DISORDER [None]
  - ILL-DEFINED DISORDER [None]
  - DEFAECATION URGENCY [None]
  - HEART RATE INCREASED [None]
  - NAUSEA [None]
  - CONSTIPATION [None]
  - HAEMATOCHEZIA [None]
  - HIATUS HERNIA [None]
  - PYREXIA [None]
  - DYSPNOEA [None]
  - MUSCULOSKELETAL PAIN [None]
  - NIGHTMARE [None]
  - NASAL DRYNESS [None]
  - SWELLING FACE [None]
  - INFLUENZA LIKE ILLNESS [None]
  - DIZZINESS [None]
  - THROAT TIGHTNESS [None]
  - DRY THROAT [None]
  - FEELING ABNORMAL [None]
  - STRESS [None]
  - ABDOMINAL PAIN [None]
  - ADVERSE DRUG REACTION [None]
  - VOMITING [None]
  - WEIGHT DECREASED [None]
  - PALPITATIONS [None]
  - LYMPH NODE PAIN [None]
  - CHEST DISCOMFORT [None]
  - DEHYDRATION [None]
  - NECK PAIN [None]
  - HEADACHE [None]
  - ANXIETY [None]
  - DYSPLASIA [None]
  - FIBROMYALGIA [None]
  - ARTHRALGIA [None]
  - SOMNOLENCE [None]
  - OROPHARYNGEAL PAIN [None]
  - DEPRESSION [None]
  - DRY MOUTH [None]
  - GASTROOESOPHAGEAL REFLUX DISEASE [None]
  - TREMOR [None]
  - ARRHYTHMIA [None]
  - WEIGHT INCREASED [None]
  - INFLAMMATORY BOWEL DISEASE [None]
